FAERS Safety Report 7288334-7 (Version None)
Quarter: 2011Q1

REPORT INFORMATION
  Report Type: 
  Country: None (occurrence: None)
  Receive Date: 20110211
  Receipt Date: 20110209
  Transmission Date: 20110831
  Serious: Yes (Other)
  Sender: FDA-Public Use
  Company Number: GB-PFIZER INC-2011029935

PATIENT
  Age: 45 Year
  Sex: Female
  Weight: 75 kg

DRUGS (2)
  1. LANSOPRAZOLE [Concomitant]
  2. CHAMPIX [Suspect]
     Indication: SMOKING CESSATION THERAPY
     Dosage: 0.1 MG, 1X/DAY
     Route: 048
     Dates: start: 20110125, end: 20110128

REACTIONS (2)
  - HALLUCINATION, VISUAL [None]
  - FEAR [None]
